FAERS Safety Report 4338610-2 (Version None)
Quarter: 2004Q2

REPORT INFORMATION
  Report Type: 
  Country: None (occurrence: None)
  Receive Date: 20040409
  Receipt Date: 20040331
  Transmission Date: 20050107
  Serious: Yes (Other)
  Sender: FDA-Public Use
  Company Number: USA-2003-0006889

PATIENT
  Age: 22 Year
  Sex: Male

DRUGS (2)
  1. OXYCONTIN [Suspect]
     Dosage: MG
  2. METHADONE (METHADONE) [Suspect]

REACTIONS (9)
  - DELUSION [None]
  - DRUG ABUSER [None]
  - DRUG DEPENDENCE [None]
  - MEMORY IMPAIRMENT [None]
  - MURDER [None]
  - OVERDOSE [None]
  - PHYSICAL ASSAULT [None]
  - SELF-MEDICATION [None]
  - SUICIDAL IDEATION [None]
